FAERS Safety Report 11870913 (Version 1)
Quarter: 2015Q4

REPORT INFORMATION
  Report Type: Spontaneous
  Country: FR (occurrence: FR)
  Receive Date: 20151228
  Receipt Date: 20151228
  Transmission Date: 20160305
  Serious: Yes (Hospitalization)
  Sender: FDA-Public Use
  Company Number: PHHY2015FR168882

PATIENT
  Age: 57 Year
  Sex: Female

DRUGS (12)
  1. COVERAM [Suspect]
     Active Substance: AMLODIPINE\PERINDOPRIL
     Indication: PRODUCT USED FOR UNKNOWN INDICATION
     Dosage: 10 MG, QD
     Route: 048
  2. NOVONORM [Concomitant]
     Active Substance: REPAGLINIDE
     Indication: PRODUCT USED FOR UNKNOWN INDICATION
     Route: 065
  3. SEPTIVON//CHLORHEXIDINE [Concomitant]
     Indication: PURULENT DISCHARGE
     Route: 065
  4. SINGULAIR [Concomitant]
     Active Substance: MONTELUKAST SODIUM
     Indication: PRODUCT USED FOR UNKNOWN INDICATION
     Route: 065
  5. TERBINAFINE. [Concomitant]
     Active Substance: TERBINAFINE
     Indication: PURULENT DISCHARGE
     Route: 065
  6. CODOLIPRANE [Concomitant]
     Active Substance: ACETAMINOPHEN\CODEINE PHOSPHATE
     Indication: CHILLS
     Route: 065
  7. BRICANYL [Concomitant]
     Active Substance: TERBUTALINE SULFATE
     Indication: PRODUCT USED FOR UNKNOWN INDICATION
     Route: 065
  8. SYMBICORT [Concomitant]
     Active Substance: BUDESONIDE\FORMOTEROL FUMARATE DIHYDRATE
     Indication: PRODUCT USED FOR UNKNOWN INDICATION
     Route: 065
  9. OMEPRAZOLE. [Concomitant]
     Active Substance: OMEPRAZOLE
     Indication: PRODUCT USED FOR UNKNOWN INDICATION
     Route: 065
  10. EUPHYLLINE [Concomitant]
     Active Substance: THEOPHYLLINE ANHYDROUS
     Indication: PRODUCT USED FOR UNKNOWN INDICATION
     Route: 065
  11. PYOSTACINE [Concomitant]
     Active Substance: PRISTINAMYCIN
     Indication: PURULENT DISCHARGE
     Route: 065
  12. VOLTARENE [Suspect]
     Active Substance: DICLOFENAC SODIUM
     Indication: BACTERIAL INFECTION
     Dosage: 75 MG, UNK
     Route: 048

REACTIONS (11)
  - Abscess limb [Recovered/Resolved]
  - Renal failure [Not Recovered/Not Resolved]
  - Pulmonary arterial hypertension [None]
  - Blood bilirubin increased [Recovered/Resolved]
  - Morganella test positive [None]
  - Renal tubular necrosis [None]
  - Wound sepsis [Recovered/Resolved]
  - Proteus test positive [None]
  - Cholestasis [None]
  - Hepatocellular injury [Recovered/Resolved]
  - Acute kidney injury [Recovered/Resolved]

NARRATIVE: CASE EVENT DATE: 20150902
